FAERS Safety Report 4411135-1 (Version None)
Quarter: 2004Q2

REPORT INFORMATION
  Report Type: 
  Country: None (occurrence: None)
  Receive Date: 20040630
  Receipt Date: 20040428
  Transmission Date: 20050107
  Serious: No
  Sender: FDA-Public Use
  Company Number: 03P-163-0229960-00

PATIENT
  Age: 80 Year
  Sex: Female

DRUGS (14)
  1. HUMIRA [Suspect]
     Indication: RHEUMATOID ARTHRITIS
     Dosage: 40 MG, 1 IN 2 WK, SUBCUTANEOUS; 40 MG, 1 IN 2 WK, SUBCUTANEOUS
     Route: 058
     Dates: start: 20030201, end: 20030601
  2. HUMIRA [Suspect]
     Indication: RHEUMATOID ARTHRITIS
     Dosage: 40 MG, 1 IN 2 WK, SUBCUTANEOUS; 40 MG, 1 IN 2 WK, SUBCUTANEOUS
     Route: 058
     Dates: start: 20030625
  3. DARVOCET-N 100 [Concomitant]
  4. FUROSEMIDE [Concomitant]
  5. DIGOXIN [Concomitant]
  6. POTASSIUM [Concomitant]
  7. ACETYLSALCYLIC ACID [Concomitant]
  8. DICYCLOMINE HCL [Concomitant]
  9. HYOSCYAMINE SULFATE [Concomitant]
  10. GLYCOPYBRONIUM BROMIDE [Concomitant]
  11. TRAZODONE HCL [Concomitant]
  12. AZELASTINE [Concomitant]
  13. METOPROLOL SUCCINATE [Concomitant]
  14. OPTIVIT [Concomitant]

REACTIONS (9)
  - CONDITION AGGRAVATED [None]
  - CONFUSIONAL STATE [None]
  - EYE IRRITATION [None]
  - MUSCULAR WEAKNESS [None]
  - OEDEMA PERIPHERAL [None]
  - PAIN IN EXTREMITY [None]
  - PARAESTHESIA [None]
  - RASH [None]
  - SINUSITIS [None]
